FAERS Safety Report 5092120-6 (Version None)
Quarter: 2006Q3

REPORT INFORMATION
  Report Type: 
  Country: None (occurrence: None)
  Receive Date: 20060825
  Receipt Date: 20060811
  Transmission Date: 20061208
  Serious: Yes (Hospitalization)
  Sender: FDA-Public Use
  Company Number: 863#3#2006-00009

PATIENT
  Age: 69 Year
  Sex: Female

DRUGS (6)
  1. IDROLAX (MACROGOL) [Suspect]
     Indication: COLONOSCOPY
     Dates: start: 20060322, end: 20060322
  2. NABUMETONE [Suspect]
     Indication: BACK PAIN
     Route: 048
     Dates: start: 20060308, end: 20060323
  3. VALSARTAN [Suspect]
     Dosage: 80 MG (80 MG 1 IN 1 DAY(S))
     Route: 048
     Dates: end: 20060323
  4. HYDROCORITSONE (HYDROCORTISONE) [Concomitant]
  5. DIOSMIN (DIOSMIN) [Concomitant]
  6. TRAMADOL HCL [Concomitant]

REACTIONS (6)
  - BLOOD CREATININE INCREASED [None]
  - DEHYDRATION [None]
  - DIARRHOEA [None]
  - HYPOVOLAEMIA [None]
  - RENAL FAILURE ACUTE [None]
  - RENAL TUBULAR NECROSIS [None]
